FAERS Safety Report 8112951-5 (Version None)
Quarter: 2012Q1

REPORT INFORMATION
  Report Type: 
  Country: None (occurrence: None)
  Receive Date: 20120203
  Receipt Date: 20120127
  Transmission Date: 20120608
  Serious: Yes (Hospitalization, Other)
  Sender: FDA-Public Use
  Company Number: US-MERCK-1103USA02109

PATIENT
  Age: 57 Year
  Sex: Female
  Weight: 41 kg

DRUGS (2)
  1. FOSAMAX [Suspect]
     Indication: OSTEOPOROSIS
     Route: 048
     Dates: start: 20010612, end: 20050319
  2. FOSAMAX [Suspect]
     Route: 048
     Dates: start: 19990405, end: 20010224

REACTIONS (20)
  - TOOTH FRACTURE [None]
  - TOOTH DISORDER [None]
  - TOOTH EXTRACTION [None]
  - OSTEONECROSIS OF JAW [None]
  - ANXIETY [None]
  - CERUMEN IMPACTION [None]
  - ABDOMINAL PAIN UPPER [None]
  - RIB FRACTURE [None]
  - APPENDICITIS [None]
  - FAECALOMA [None]
  - FALL [None]
  - MUSCLE SPASMS [None]
  - DEPRESSION [None]
  - GLAUCOMA [None]
  - OSTEOPENIA [None]
  - SINUSITIS [None]
  - PULPITIS DENTAL [None]
  - OSTEOMYELITIS [None]
  - PERIODONTITIS [None]
  - EAR PAIN [None]
